FAERS Safety Report 9254503 (Version 1)
Quarter: 2013Q1

REPORT INFORMATION
  Report Type: Spontaneous
  Country: US (occurrence: None)
  Receive Date: 20121203
  Receipt Date: 20121203
  Transmission Date: 20140127
  Serious: Yes (Hospitalization)
  Sender: FDA-Public Use
  Company Number: 2012SP011808

PATIENT
  Age: 30 Year
  Sex: Female
  Weight: 90.7 kg

DRUGS (2)
  1. NUVARING [Suspect]
     Indication: MENSTRUATION IRREGULAR
     Dosage: 0.12-0.015 MG/24 HRS, VAGINAL
     Route: 067
  2. NUVARING [Suspect]
     Indication: CONTRACEPTION
     Dosage: 0.12-0.015 MG/24 HRS, VAGINAL
     Route: 067

REACTIONS (6)
  - Transverse sinus thrombosis [None]
  - Emotional disorder [None]
  - Migraine [None]
  - Lymphadenopathy [None]
  - Carpal tunnel syndrome [None]
  - Asthma [None]
